APPROVED DRUG PRODUCT: CLADRIBINE
Active Ingredient: CLADRIBINE
Strength: 1MG/ML
Dosage Form/Route: INJECTABLE;INJECTION
Application: A210856 | Product #001 | TE Code: AP
Applicant: HISUN PHARMACEUTICAL (HANGZHOU) CO LTD
Approved: Nov 25, 2019 | RLD: No | RS: No | Type: RX